FAERS Safety Report 15963904 (Version 1)
Quarter: 2019Q1

REPORT INFORMATION
  Report Type: Report from Study
  Country: FR (occurrence: FR)
  Receive Date: 20190214
  Receipt Date: 20190214
  Transmission Date: 20190417
  Serious: Yes (Other)
  Sender: FDA-Public Use
  Company Number: FR-TEVA-2019-FR-1010304

PATIENT
  Age: 71 Year
  Sex: Male

DRUGS (4)
  1. BIMATOPROST. [Suspect]
     Active Substance: BIMATOPROST
     Indication: OPEN ANGLE GLAUCOMA
     Dosage: 0.1 (UNITS NOT STATED) ONCE A DAY
     Route: 061
  2. INDOMETHACIN. [Concomitant]
     Active Substance: INDOMETHACIN
     Dosage: PRESERVATIVE FREE FORM TWICE A DAY
     Route: 061
  3. BRIMONIDINE [Suspect]
     Active Substance: BRIMONIDINE TARTRATE
     Indication: OPEN ANGLE GLAUCOMA
     Dosage: TWICE A DAY
     Route: 061
  4. DORZOLAMIDE [Suspect]
     Active Substance: DORZOLAMIDE
     Indication: OPEN ANGLE GLAUCOMA
     Dosage: TWICE A DAY
     Route: 061

REACTIONS (4)
  - Ocular surface disease [Recovering/Resolving]
  - Drug ineffective [Unknown]
  - Toxicity to various agents [Recovering/Resolving]
  - Open angle glaucoma [Recovering/Resolving]
